FAERS Safety Report 9417874 (Version 1)
Quarter: 2013Q3

REPORT INFORMATION
  Report Type: Spontaneous
  Country: BR (occurrence: BR)
  Receive Date: 20130724
  Receipt Date: 20130724
  Transmission Date: 20140515
  Serious: Yes (Other)
  Sender: FDA-Public Use
  Company Number: BR-AMGEN-BRASP2013051394

PATIENT
  Age: 40 Year
  Sex: Male
  Weight: 55 kg

DRUGS (3)
  1. ENBREL [Suspect]
     Indication: PSORIATIC ARTHROPATHY
     Dosage: 50 MG, ONCE WEEKLY
     Route: 058
     Dates: start: 2012, end: 201209
  2. DICLOFENAC SODIUM [Concomitant]
     Indication: PAIN
     Dosage: UNK
  3. DIPIRONE [Concomitant]
     Indication: PAIN
     Dosage: UNK

REACTIONS (1)
  - Psoriatic arthropathy [Unknown]
